FAERS Safety Report 8472904-4 (Version None)
Quarter: 2012Q2

REPORT INFORMATION
  Report Type: 
  Country: None (occurrence: None)
  Receive Date: 20120627
  Receipt Date: 20120618
  Transmission Date: 20120825
  Serious: Yes (Other)
  Sender: FDA-Public Use
  Company Number: US-JNJFOC-20120611615

PATIENT

DRUGS (4)
  1. FOSAMPRENAVIR CALCIUM [Suspect]
     Indication: HIV INFECTION
     Route: 065
  2. ATAZANAVIR [Suspect]
     Indication: HIV INFECTION
     Route: 065
  3. LOPINAVIR [Suspect]
     Indication: HIV INFECTION
     Route: 065
  4. DARUNAVIR HYDRATE [Suspect]
     Indication: HIV INFECTION
     Route: 065

REACTIONS (5)
  - LIPIDS ABNORMAL [None]
  - DIABETES MELLITUS [None]
  - JAUNDICE [None]
  - GASTROINTESTINAL DISORDER [None]
  - RASH [None]
